FAERS Safety Report 14996803 (Version 1)
Quarter: 2018Q2

REPORT INFORMATION
  Report Type: Spontaneous
  Country: US (occurrence: US)
  Receive Date: 20180611
  Receipt Date: 20180611
  Transmission Date: 20180711
  Serious: No
  Sender: FDA-Public Use
  Company Number: US-BAYER-2018-104626

PATIENT
  Age: 60 Year
  Sex: Female
  Weight: 74.97 kg

DRUGS (14)
  1. ATORVASTATIN [Concomitant]
     Active Substance: ATORVASTATIN
  2. LASIX [Concomitant]
     Active Substance: FUROSEMIDE
  3. HUMALOG [Concomitant]
     Active Substance: INSULIN LISPRO
  4. MIRALAX [Suspect]
     Active Substance: POLYETHYLENE GLYCOL 3350
     Indication: SMALL INTESTINAL STENOSIS
     Dosage: 2 DF, UNK
     Route: 048
  5. ZANTAC [Concomitant]
     Active Substance: RANITIDINE HYDROCHLORIDE
  6. GLIMEPIRIDE. [Concomitant]
     Active Substance: GLIMEPIRIDE
  7. PRILOSEC [Concomitant]
     Active Substance: OMEPRAZOLE MAGNESIUM
  8. NEURONTIN [Concomitant]
     Active Substance: GABAPENTIN
  9. WARFARIN [Concomitant]
     Active Substance: WARFARIN
  10. LOPRESSOR [Concomitant]
     Active Substance: METOPROLOL TARTRATE
  11. GLIPIZIDE. [Concomitant]
     Active Substance: GLIPIZIDE
  12. POTASSIUM CHLORIDE. [Concomitant]
     Active Substance: POTASSIUM CHLORIDE
  13. CALCIUM WITH VITAMIN D [Concomitant]
     Active Substance: CALCIUM\VITAMIN D
  14. LANTUS [Concomitant]
     Active Substance: INSULIN GLARGINE

REACTIONS (5)
  - Incorrect dose administered [Unknown]
  - Drug ineffective [Unknown]
  - Product use in unapproved indication [Unknown]
  - Product prescribing issue [Unknown]
  - Incorrect drug administration duration [Unknown]
